FAERS Safety Report 6981118-6 (Version None)
Quarter: 2010Q3

REPORT INFORMATION
  Report Type: 
  Country: None (occurrence: None)
  Receive Date: 20100914
  Receipt Date: 20100907
  Transmission Date: 20110219
  Serious: Yes (Hospitalization, Disabling, Other)
  Sender: FDA-Public Use
  Company Number: US-MERCK-0806USA08279

PATIENT
  Age: 60 Year
  Sex: Female
  Weight: 55 kg

DRUGS (6)
  1. FOSAMAX [Suspect]
     Indication: OSTEOPOROSIS PROPHYLAXIS
     Route: 048
     Dates: start: 19960601, end: 20010924
  2. FOSAMAX [Suspect]
     Route: 048
     Dates: start: 20010901, end: 20050901
  3. FOSAMAX [Suspect]
     Route: 048
     Dates: end: 20061001
  4. FOSAMAX [Suspect]
     Indication: OSTEOPENIA
     Route: 048
     Dates: start: 19960601, end: 20010924
  5. FOSAMAX [Suspect]
     Route: 048
     Dates: start: 20010901, end: 20050901
  6. FOSAMAX [Suspect]
     Route: 048
     Dates: end: 20061001

REACTIONS (34)
  - ACTINIC KERATOSIS [None]
  - ANKLE FRACTURE [None]
  - ARTHRALGIA [None]
  - ARTHROPATHY [None]
  - BACK DISORDER [None]
  - BLOOD CALCIUM INCREASED [None]
  - BLOOD CHOLESTEROL INCREASED [None]
  - BONE DENSITY DECREASED [None]
  - CYST [None]
  - DEVICE INTOLERANCE [None]
  - EAR PAIN [None]
  - EYE DISORDER [None]
  - EYELID DISORDER [None]
  - FEMUR FRACTURE [None]
  - FOOT FRACTURE [None]
  - HIP FRACTURE [None]
  - INFLUENZA [None]
  - INTERVERTEBRAL DISC DEGENERATION [None]
  - INTERVERTEBRAL DISC PROTRUSION [None]
  - INTERVERTEBRAL DISC SPACE NARROWING [None]
  - JOINT SPRAIN [None]
  - KYPHOSCOLIOSIS [None]
  - LUNG NEOPLASM [None]
  - MUSCLE DISORDER [None]
  - OEDEMA PERIPHERAL [None]
  - PHARYNGITIS [None]
  - RESPIRATORY TRACT INFECTION [None]
  - SEBACEOUS HYPERPLASIA [None]
  - SPINAL OSTEOARTHRITIS [None]
  - SQUAMOUS CELL CARCINOMA [None]
  - STRESS FRACTURE [None]
  - TEMPOROMANDIBULAR JOINT SYNDROME [None]
  - TRACHEOBRONCHITIS [None]
  - URINE CALCIUM INCREASED [None]
